FAERS Safety Report 13097827 (Version 1)
Quarter: 2017Q1

REPORT INFORMATION
  Report Type: Spontaneous
  Country: US (occurrence: US)
  Receive Date: 20170109
  Receipt Date: 20170109
  Transmission Date: 20170428
  Serious: Yes (Other)
  Sender: FDA-Public Use
  Company Number: US-BAYER-2017-003634

PATIENT
  Sex: Female

DRUGS (2)
  1. MIRENA [Suspect]
     Active Substance: LEVONORGESTREL
     Dosage: 20 MCG/24HR, CONT
     Route: 015
     Dates: end: 20140103
  2. MIRENA [Suspect]
     Active Substance: LEVONORGESTREL

REACTIONS (2)
  - Device dislocation [Not Recovered/Not Resolved]
  - Pain [Not Recovered/Not Resolved]
